FAERS Safety Report 23255610 (Version 1)
Quarter: 2023Q4

REPORT INFORMATION
  Report Type: Spontaneous
  Country: TN (occurrence: TN)
  Receive Date: 20231203
  Receipt Date: 20231203
  Transmission Date: 20240110
  Serious: Yes (Other)
  Sender: FDA-Public Use
  Company Number: TN-BAUSCHBL-2023BNL012166

PATIENT
  Age: 36 Year
  Sex: Male

DRUGS (2)
  1. OFLOXACIN [Suspect]
     Active Substance: OFLOXACIN
     Indication: Urinary tract infection
     Route: 065
  2. OFLOXACIN [Suspect]
     Active Substance: OFLOXACIN
     Dosage: A MONTH LATER
     Route: 065

REACTIONS (2)
  - Generalised bullous fixed drug eruption [Recovered/Resolved with Sequelae]
  - Cross sensitivity reaction [Unknown]
